FAERS Safety Report 4616196-2 (Version None)
Quarter: 2005Q1

REPORT INFORMATION
  Report Type: 
  Country: None (occurrence: None)
  Receive Date: 20050321
  Receipt Date: 20050308
  Transmission Date: 20050727
  Serious: Yes (Other)
  Sender: FDA-Public Use
  Company Number: 2005042053

PATIENT
  Age: 70 Year
  Sex: Female
  Weight: 45.3597 kg

DRUGS (8)
  1. CELEBREX [Suspect]
     Indication: ARTHRITIS
     Dosage: (1 IN 1 D), ORAL
     Route: 048
     Dates: end: 20050204
  2. CELEBREX [Suspect]
     Indication: OSTEOPOROSIS
     Dosage: (1 IN 1 D), ORAL
     Route: 048
     Dates: end: 20050204
  3. METOPROLOL TARTRATE [Concomitant]
  4. CLONAZEPAM [Concomitant]
  5. CALCIUM CARBONATE (CALCIUM CARBONATE) [Concomitant]
  6. MULTIVITAMINS (ASCORBIC ACID, ERGOCALCIFEROL, FOLIC ACID, NICOTINAMIDE [Concomitant]
  7. BECOSYM  FORTE (NICOTINAMIDE, PYRIDOXINE HYDROCHLORIDE, RIBOFLAVIN, TH [Concomitant]
  8. TOCOPHEROL (TOCOPHEROL) [Concomitant]

REACTIONS (11)
  - ANXIETY [None]
  - ATRIOVENTRICULAR BLOCK [None]
  - BLOOD PRESSURE DECREASED [None]
  - CARDIAC ARREST [None]
  - FEELING ABNORMAL [None]
  - FEELING HOT [None]
  - FULL BLOOD COUNT DECREASED [None]
  - GASTRIC ULCER HAEMORRHAGE [None]
  - LABORATORY TEST ABNORMAL [None]
  - LOSS OF CONSCIOUSNESS [None]
  - MALAISE [None]
